FAERS Safety Report 11115673 (Version 2)
Quarter: 2015Q2

REPORT INFORMATION
  Report Type: Report from Study
  Country: US (occurrence: US)
  Receive Date: 20150515
  Receipt Date: 20150622
  Transmission Date: 20150821
  Serious: Yes (Hospitalization, Disabling, Other)
  Sender: FDA-Public Use
  Company Number: US-ALEXION PHARMACEUTICALS INC.-A201501649

PATIENT

DRUGS (1)
  1. SOLIRIS [Suspect]
     Active Substance: ECULIZUMAB
     Indication: HAEMOLYTIC URAEMIC SYNDROME
     Dosage: UNK
     Route: 042

REACTIONS (6)
  - Cerebrovascular accident [Unknown]
  - Dysarthria [Unknown]
  - Aphasia [Unknown]
  - Bedridden [Unknown]
  - Platelet count abnormal [Unknown]
  - Hemiplegia [Unknown]

NARRATIVE: CASE EVENT DATE: 20150503
